FAERS Safety Report 7411167-5 (Version None)
Quarter: 2011Q2

REPORT INFORMATION
  Report Type: 
  Country: None (occurrence: None)
  Receive Date: 20110413
  Receipt Date: 20100324
  Transmission Date: 20111010
  Serious: Yes (Other)
  Sender: FDA-Public Use
  Company Number: US-BRISTOL-MYERS SQUIBB COMPANY-15022312

PATIENT
  Age: 47 Year
  Sex: Male

DRUGS (12)
  1. ADVAIR DISKUS 100/50 [Concomitant]
  2. BENADRYL [Concomitant]
     Indication: PREMEDICATION
  3. RADIATION THERAPY [Concomitant]
  4. DIPHENHYDRAMINE [Concomitant]
     Indication: PREMEDICATION
  5. FAMOTIDINE [Concomitant]
     Indication: PREMEDICATION
  6. PROVENTIL GENTLEHALER [Concomitant]
     Indication: PREMEDICATION
     Route: 055
  7. LORTAB [Concomitant]
  8. LISINOPRIL [Concomitant]
  9. METHYLPREDNISOLONE ACETATE [Concomitant]
     Indication: PREMEDICATION
  10. ERBITUX [Suspect]
     Indication: SQUAMOUS CELL CARCINOMA
     Dosage: PLANNED 990MG
  11. SOLU-MEDROL [Concomitant]
     Indication: PREMEDICATION
  12. PEPCID [Concomitant]
     Indication: PREMEDICATION

REACTIONS (3)
  - PRURITUS [None]
  - DYSPNOEA [None]
  - URTICARIA [None]
